FAERS Safety Report 4674671-9 (Version None)
Quarter: 2005Q2

REPORT INFORMATION
  Report Type: 
  Country: None (occurrence: None)
  Receive Date: 20050526
  Receipt Date: 20050512
  Transmission Date: 20051028
  Serious: Yes (Disabling)
  Sender: FDA-Public Use
  Company Number: ZW-GLAXOSMITHKLINE-B0380825A

PATIENT
  Age: 38 Year
  Sex: Female

DRUGS (3)
  1. COMBIVIR [Suspect]
     Indication: HIV INFECTION
     Route: 048
  2. TENOFOVIR [Suspect]
     Indication: HIV INFECTION
     Route: 048
  3. CO-TRIMOXAZOLE [Concomitant]

REACTIONS (7)
  - ABDOMINAL DISTENSION [None]
  - CARDIAC FAILURE CONGESTIVE [None]
  - CARDIAC MURMUR [None]
  - DYSPNOEA [None]
  - LUNG CREPITATION [None]
  - OEDEMA PERIPHERAL [None]
  - ORTHOPNOEA [None]
